FAERS Safety Report 10945941 (Version 4)
Quarter: 2017Q4

REPORT INFORMATION
  Report Type: Spontaneous
  Country: US (occurrence: US)
  Receive Date: 20150323
  Receipt Date: 20171006
  Transmission Date: 20180320
  Serious: Yes (Other)
  Sender: FDA-Public Use
  Company Number: US-BAYER-2015-045295

PATIENT
  Age: 42 Year
  Sex: Female
  Weight: 69.84 kg

DRUGS (2)
  1. LIDOCAINE. [Concomitant]
     Active Substance: LIDOCAINE
     Indication: INTRA-UTERINE CONTRACEPTIVE DEVICE INSERTION
     Dosage: 10 ML, UNK
  2. MIRENA [Suspect]
     Active Substance: LEVONORGESTREL
     Indication: CONTRACEPTION
     Dosage: UNK
     Route: 015
     Dates: start: 20091118, end: 20150806

REACTIONS (4)
  - Device use error [None]
  - Complication of device removal [None]
  - Embedded device [Recovered/Resolved]
  - Device breakage [None]

NARRATIVE: CASE EVENT DATE: 201503
